FAERS Safety Report 19412314 (Version 17)
Quarter: 2022Q1

REPORT INFORMATION
  Report Type: Report from Study
  Country: KR (occurrence: None)
  Receive Date: 20210614
  Receipt Date: 20220203
  Transmission Date: 20220424
  Serious: Yes (Hospitalization)
  Sender: FDA-Public Use
  Company Number: KR-EISAI MEDICAL RESEARCH-EC-2021-094313

PATIENT
  Age: 81 Year
  Sex: Female
  Weight: 66.8 kg

DRUGS (32)
  1. LENVATINIB [Suspect]
     Active Substance: LENVATINIB
     Indication: Gastrooesophageal cancer
     Route: 048
     Dates: start: 20210512, end: 20210512
  2. LENVATINIB [Suspect]
     Active Substance: LENVATINIB
     Dosage: STARTING DOSE: 8 MG, FLUCTUATED DOSAGE
     Route: 048
     Dates: start: 20210513, end: 20210602
  3. LENVATINIB [Suspect]
     Active Substance: LENVATINIB
     Dosage: STARTING DOSE: 6 MG, FLUCTUATED DOSAGE
     Route: 048
     Dates: start: 20210603
  4. PEMBROLIZUMAB [Suspect]
     Active Substance: PEMBROLIZUMAB
     Indication: Adenocarcinoma gastric
     Route: 042
     Dates: start: 20210512, end: 20210512
  5. PEMBROLIZUMAB [Suspect]
     Active Substance: PEMBROLIZUMAB
     Indication: Oesophageal adenocarcinoma
     Route: 042
     Dates: start: 20210709
  6. OXALIPLATIN [Suspect]
     Active Substance: OXALIPLATIN
     Indication: Adenocarcinoma gastric
     Dosage: FOR 6 CYCLES
     Route: 042
     Dates: start: 20210512, end: 20210512
  7. OXALIPLATIN [Suspect]
     Active Substance: OXALIPLATIN
     Indication: Oesophageal adenocarcinoma
     Dosage: FOR 6 CYCLES
     Route: 042
     Dates: start: 20210602, end: 20210602
  8. OXALIPLATIN [Suspect]
     Active Substance: OXALIPLATIN
     Dosage: FOR 6 CYCLES
     Route: 042
     Dates: start: 20210625
  9. LEUCOVORIN [Suspect]
     Active Substance: LEUCOVORIN
     Indication: Gastrooesophageal cancer
     Dosage: FOR 6 CYCLES
     Route: 042
     Dates: start: 20210512, end: 20210512
  10. LEUCOVORIN [Suspect]
     Active Substance: LEUCOVORIN
     Dosage: FOR 6 CYCLES
     Route: 042
     Dates: start: 20210602, end: 20210602
  11. LEUCOVORIN [Suspect]
     Active Substance: LEUCOVORIN
     Dosage: FOR 6 CYCLES
     Route: 042
     Dates: start: 20210625
  12. FLUOROURACIL [Suspect]
     Active Substance: FLUOROURACIL
     Indication: Adenocarcinoma gastric
     Dosage: BOLUS
     Route: 042
     Dates: start: 20210512, end: 20210512
  13. FLUOROURACIL [Suspect]
     Active Substance: FLUOROURACIL
     Indication: Oesophageal adenocarcinoma
     Dosage: FOR 6 CYCLES
     Route: 042
     Dates: start: 20210512, end: 20210514
  14. FLUOROURACIL [Suspect]
     Active Substance: FLUOROURACIL
     Dosage: BOLUS
     Route: 042
     Dates: start: 20210602, end: 20210602
  15. FLUOROURACIL [Suspect]
     Active Substance: FLUOROURACIL
     Dosage: FOR 6 CYCLES
     Route: 042
     Dates: start: 20210602, end: 20210604
  16. FLUOROURACIL [Suspect]
     Active Substance: FLUOROURACIL
     Dosage: FOR 6 CYCLES
     Route: 042
     Dates: start: 20210625
  17. FLUOROURACIL [Suspect]
     Active Substance: FLUOROURACIL
     Dosage: FOR 6 CYCLES
     Route: 042
     Dates: start: 20210625
  18. NALOXONE HYDROCHLORIDE\OXYCODONE HYDROCHLORIDE [Concomitant]
     Active Substance: NALOXONE HYDROCHLORIDE\OXYCODONE HYDROCHLORIDE
     Dates: start: 20210514, end: 20210610
  19. CRESTOR [Concomitant]
     Active Substance: ROSUVASTATIN CALCIUM
     Dates: start: 200105
  20. DICAMAX [Concomitant]
     Dates: start: 200505
  21. LAMINA-G [Concomitant]
     Dates: start: 20210419, end: 20210609
  22. NORZYME [Concomitant]
     Dates: start: 20210423, end: 20210520
  23. LANSOPRAZOLE [Concomitant]
     Active Substance: LANSOPRAZOLE
     Dates: start: 20210511, end: 20210723
  24. OXYCODONE HYDROCHLORIDE [Concomitant]
     Active Substance: OXYCODONE HYDROCHLORIDE
     Dates: start: 20210514, end: 20210610
  25. MEGACE F [Concomitant]
     Dates: start: 20210515, end: 20210529
  26. TYLENOL 8HR [Concomitant]
     Active Substance: ACETAMINOPHEN
     Dates: start: 20210526, end: 20210529
  27. MAGNESIUM OXIDE [Concomitant]
     Active Substance: MAGNESIUM OXIDE
     Dates: start: 20210526, end: 20211214
  28. FILGRASTIM [Concomitant]
     Active Substance: FILGRASTIM
     Dates: start: 20210526, end: 20210526
  29. MICARDIS [Concomitant]
     Active Substance: TELMISARTAN
     Dates: start: 202105
  30. ALOXI [Concomitant]
     Active Substance: PALONOSETRON HYDROCHLORIDE
     Dates: start: 20210602, end: 20210602
  31. NORVASC [Concomitant]
     Active Substance: AMLODIPINE BESYLATE
     Dates: start: 20210512, end: 20210903
  32. LEVOTHYROXINE SODIUM [Concomitant]
     Active Substance: LEVOTHYROXINE SODIUM
     Dates: start: 202105, end: 20210609

REACTIONS (1)
  - Hypertension [Recovered/Resolved]

NARRATIVE: CASE EVENT DATE: 20210602
